FAERS Safety Report 23532334 (Version 2)
Quarter: 2024Q1

REPORT INFORMATION
  Report Type: Report from Study
  Country: US (occurrence: US)
  Receive Date: 20240216
  Receipt Date: 20240315
  Transmission Date: 20240410
  Serious: Yes (Other)
  Sender: FDA-Public Use
  Company Number: US-ABBVIE-5641913

PATIENT
  Sex: Female

DRUGS (2)
  1. RINVOQ [Suspect]
     Active Substance: UPADACITINIB
     Indication: Dermatitis atopic
     Route: 048
     Dates: start: 20230307
  2. RINVOQ [Suspect]
     Active Substance: UPADACITINIB
     Indication: Dermatitis atopic
     Dosage: DRUG STOP DATE MAR 2023
     Route: 048
     Dates: start: 20230302

REACTIONS (4)
  - Knee arthroplasty [Recovering/Resolving]
  - Dermatitis atopic [Recovering/Resolving]
  - Pain [Recovering/Resolving]
  - Illness [Unknown]
